FAERS Safety Report 21059377 (Version 1)
Quarter: 2022Q3

REPORT INFORMATION
  Report Type: Spontaneous
  Country: US (occurrence: None)
  Receive Date: 20220708
  Receipt Date: 20220708
  Transmission Date: 20221027
  Serious: No
  Sender: FDA-Public Use
  Company Number: None

PATIENT
  Sex: Female
  Weight: 90.26 kg

DRUGS (15)
  1. VERZENIO [Suspect]
     Active Substance: ABEMACICLIB
     Indication: Breast cancer female
     Dosage: FREQUENCY : TWICE A DAY;?
     Route: 048
  2. ASPIRIN [Concomitant]
     Active Substance: ASPIRIN
  3. ayr nasal solution [Concomitant]
  4. BUMETANIDE [Concomitant]
     Active Substance: BUMETANIDE
  5. CALTRATE [Concomitant]
     Active Substance: CALCIUM CARBONATE
  6. CARVEDILOL [Concomitant]
     Active Substance: CARVEDILOL
  7. DIGOXIN [Concomitant]
     Active Substance: DIGOXIN
  8. FEBUXOSTAT [Concomitant]
     Active Substance: FEBUXOSTAT
  9. ipratropium-albuterol sol [Concomitant]
  10. LETROZOLE [Concomitant]
     Active Substance: LETROZOLE
  11. LOSARTAN [Concomitant]
     Active Substance: LOSARTAN
  12. MAGNESIUM OXIDE [Concomitant]
     Active Substance: MAGNESIUM OXIDE
  13. OMEPRAZOLE [Concomitant]
     Active Substance: OMEPRAZOLE
  14. POTASSIUM CHLORIDE [Concomitant]
  15. ZYRTEC [Concomitant]
     Active Substance: CETIRIZINE HYDROCHLORIDE

REACTIONS (2)
  - Adverse drug reaction [None]
  - Gastrointestinal disorder [None]
